FAERS Safety Report 13365607 (Version 1)
Quarter: 2017Q1

REPORT INFORMATION
  Report Type: Spontaneous
  Country: US (occurrence: US)
  Receive Date: 20170323
  Receipt Date: 20170323
  Transmission Date: 20170429
  Serious: No
  Sender: FDA-Public Use
  Company Number: US-WARNER CHILCOTT-2016-001344

PATIENT
  Sex: Female

DRUGS (2)
  1. ESTRACE [Suspect]
     Active Substance: ESTRADIOL
     Dosage: ONCE WEEKLY
     Route: 065
  2. ESTRACE [Suspect]
     Active Substance: ESTRADIOL
     Dosage: UNKNOWN
     Route: 065

REACTIONS (7)
  - Migraine [Unknown]
  - Nipple pain [Unknown]
  - Drug dose omission [Unknown]
  - Nipple swelling [Unknown]
  - Therapy change [Unknown]
  - Abdominal distension [Unknown]
  - Pruritus [Unknown]
